FAERS Safety Report 12521510 (Version 2)
Quarter: 2016Q3

REPORT INFORMATION
  Report Type: Report from Study
  Country: IL (occurrence: IL)
  Receive Date: 20160701
  Receipt Date: 20160722
  Transmission Date: 20161109
  Serious: Yes (Other)
  Sender: FDA-Public Use
  Company Number: IL-BIOGEN-2016BI00258193

PATIENT
  Age: 16 Year
  Sex: Female
  Weight: 48 kg

DRUGS (2)
  1. AVONEX [Suspect]
     Active Substance: INTERFERON BETA-1A
     Indication: MULTIPLE SCLEROSIS
     Route: 030
     Dates: start: 20150210, end: 20160627
  2. AVONEX [Suspect]
     Active Substance: INTERFERON BETA-1A
     Dosage: TITRATION DOSE OVER THREE WEEKS, GRADUALLY INCREASE DOSE BY 1/3 UNTIL FULL DOSE OF 30 UG IS REACHED
     Route: 065

REACTIONS (2)
  - Drug administered to patient of inappropriate age [Recovered/Resolved]
  - Hepatic enzyme increased [Recovered/Resolved]

NARRATIVE: CASE EVENT DATE: 20150210
